FAERS Safety Report 25472978 (Version 1)
Quarter: 2025Q2

REPORT INFORMATION
  Report Type: Spontaneous
  Country: GB (occurrence: GB)
  Receive Date: 20250624
  Receipt Date: 20250624
  Transmission Date: 20250717
  Serious: Yes (Other)
  Sender: HIKMA
  Company Number: GB-MLMSERVICE-20250609-PI536322-00196-1

PATIENT
  Age: 57 Year
  Sex: Female

DRUGS (1)
  1. LEVETIRACETAM [Suspect]
     Active Substance: LEVETIRACETAM
     Indication: Seizure
     Dosage: 250 MILLIGRAM, Q12H
     Route: 065

REACTIONS (8)
  - Cognitive disorder [Recovered/Resolved]
  - Depressed mood [Recovered/Resolved]
  - Fatigue [Recovered/Resolved]
  - Headache [Recovered/Resolved]
  - Lethargy [Recovered/Resolved]
  - Memory impairment [Recovered/Resolved]
  - Somnolence [Recovered/Resolved]
  - Suicidal ideation [Recovered/Resolved]
